FAERS Safety Report 8930518 (Version 1)
Quarter: 2012Q4

REPORT INFORMATION
  Report Type: 
  Country: NL (occurrence: NL)
  Receive Date: 20121128
  Receipt Date: 20121128
  Transmission Date: 20130627
  Serious: Yes (Hospitalization)
  Sender: FDA-Public Use
  Company Number: NL-ALEXION-A201202239

PATIENT
  Age: 42 Year
  Sex: Male

DRUGS (3)
  1. SOLIRIS 300MG [Suspect]
     Indication: PAROXYSMAL NOCTURNAL HAEMOGLOBINURIA
     Dosage: 600 mg, UNK
     Route: 042
     Dates: start: 20080522, end: 20080618
  2. SOLIRIS 300MG [Suspect]
     Dosage: 900 mg, UNK
     Route: 042
     Dates: start: 20080618
  3. FOLIC ACID [Concomitant]
     Indication: BONE MARROW FAILURE
     Dosage: 5 mg, qd
     Route: 048

REACTIONS (2)
  - Bacterial sepsis [Recovered/Resolved]
  - Gonorrhoea [Recovered/Resolved]
